FAERS Safety Report 7537189-1 (Version None)
Quarter: 2011Q2

REPORT INFORMATION
  Report Type: 
  Country: None (occurrence: None)
  Receive Date: 20110603
  Receipt Date: 20110601
  Transmission Date: 20111010
  Serious: Yes (Hospitalization, Other)
  Sender: FDA-Public Use
  Company Number: SP03722

PATIENT
  Age: 84 Year
  Sex: Female

DRUGS (2)
  1. VALSARTAN [Concomitant]
  2. VISICOL [Suspect]
     Indication: BOWEL PREPARATION
     Dosage: ORAL
     Route: 048
     Dates: start: 20110517, end: 20110517

REACTIONS (2)
  - RENAL FAILURE ACUTE [None]
  - CARDIOMEGALY [None]
